FAERS Safety Report 4550338-2 (Version None)
Quarter: 2005Q1

REPORT INFORMATION
  Report Type: 
  Country: None (occurrence: None)
  Receive Date: 20050112
  Receipt Date: 20040915
  Transmission Date: 20050727
  Serious: Yes (Life-Threatening, Hospitalization)
  Sender: FDA-Public Use
  Company Number: US-2004-BP-08294BP

PATIENT
  Age: 80 Year
  Sex: Female

DRUGS (4)
  1. SPIRIVA [Suspect]
     Indication: CHRONIC OBSTRUCTIVE PULMONARY DISEASE
     Route: 055
     Dates: start: 20040804
  2. ADVAIR DISKUS 100/50 [Concomitant]
     Indication: CHRONIC OBSTRUCTIVE PULMONARY DISEASE
  3. ALBUTEROL [Concomitant]
     Indication: CHRONIC OBSTRUCTIVE PULMONARY DISEASE
  4. LEVOXYL [Concomitant]
     Indication: HYPOTHYROIDISM

REACTIONS (11)
  - ANXIETY [None]
  - ASTHENIA [None]
  - CHILLS [None]
  - COUGH [None]
  - DIARRHOEA [None]
  - DYSPEPSIA [None]
  - DYSPNOEA EXACERBATED [None]
  - FATIGUE [None]
  - HEADACHE [None]
  - HYPERHIDROSIS [None]
  - PAIN [None]
